FAERS Safety Report 7692654-1 (Version None)
Quarter: 2011Q3

REPORT INFORMATION
  Report Type: 
  Country: None (occurrence: None)
  Receive Date: 20110819
  Receipt Date: 20110808
  Transmission Date: 20111222
  Serious: Yes (Life-Threatening, Hospitalization)
  Sender: FDA-Public Use
  Company Number: GR-RANBAXY-2011R1-46930

PATIENT
  Age: 49 Year
  Sex: Female

DRUGS (2)
  1. ZOLPIDEM TARTRATE [Suspect]
     Indication: INSOMNIA
     Dosage: 10 MG/DAY.
     Route: 065
  2. ZOLPIDEM TARTRATE [Suspect]
     Dosage: UNK
     Route: 065

REACTIONS (4)
  - WITHDRAWAL SYNDROME [None]
  - DEPENDENCE [None]
  - DRUG ABUSE [None]
  - DRUG WITHDRAWAL CONVULSIONS [None]
